FAERS Safety Report 9137641 (Version 2)
Quarter: 2013Q1

REPORT INFORMATION
  Report Type: Spontaneous
  Country: US (occurrence: US)
  Receive Date: 20130304
  Receipt Date: 20130325
  Transmission Date: 20140127
  Serious: Yes (Other)
  Sender: FDA-Public Use
  Company Number: PHEH2013US005114

PATIENT
  Sex: Female
  Weight: 63.39 kg

DRUGS (6)
  1. GILENYA [Suspect]
     Indication: MULTIPLE SCLEROSIS
     Dosage: 0.5 MG, QD
     Route: 048
     Dates: start: 20110511, end: 20111120
  2. LUNESTA [Concomitant]
     Indication: INSOMNIA
     Dosage: 2 MG, PRN, ONCE DAILY
     Route: 048
     Dates: start: 20080930
  3. VALIUM [Concomitant]
     Indication: MUSCLE SPASMS
     Dosage: 2 MG, PRN, ONCE DAILY
     Route: 048
     Dates: start: 20111115
  4. VYTORIN [Concomitant]
     Indication: HYPERCHOLESTEROLAEMIA
     Dosage: 0.25 MG, QD
     Route: 048
     Dates: start: 20080701
  5. FLONASE [Concomitant]
     Indication: SEASONAL ALLERGY
     Dosage: 50 MG, QD
     Dates: start: 20091210
  6. SUDAFED [Concomitant]
     Indication: SEASONAL ALLERGY
     Dosage: UNK, QD, PRN
     Route: 048
     Dates: start: 20100408

REACTIONS (3)
  - Colorectal cancer [Recovering/Resolving]
  - Squamous cell carcinoma [Recovering/Resolving]
  - Rectal haemorrhage [Unknown]
